FAERS Safety Report 15453584 (Version 2)
Quarter: 2018Q4

REPORT INFORMATION
  Report Type: Spontaneous
  Country: CL (occurrence: CL)
  Receive Date: 20181001
  Receipt Date: 20181004
  Transmission Date: 20190204
  Serious: Yes (Other)
  Sender: FDA-Public Use
  Company Number: CL-009507513-1810CHL000256

PATIENT
  Age: 68 Year
  Sex: Male

DRUGS (3)
  1. CEFADROXIL. [Concomitant]
     Active Substance: CEFADROXIL
     Dosage: UNK
     Route: 048
     Dates: start: 2016
  2. CUBICIN [Suspect]
     Active Substance: DAPTOMYCIN
     Indication: OSTEOMYELITIS
     Dosage: TOTAL DOSE: 500 MG
     Dates: start: 2016, end: 201604
  3. CUBICIN [Suspect]
     Active Substance: DAPTOMYCIN
     Indication: SEPTIC ARTHRITIS STAPHYLOCOCCAL

REACTIONS (1)
  - Interstitial lung disease [Recovered/Resolved]

NARRATIVE: CASE EVENT DATE: 201604
